FAERS Safety Report 8251634-8 (Version None)
Quarter: 2012Q2

REPORT INFORMATION
  Report Type: 
  Country: None (occurrence: None)
  Receive Date: 20120402
  Receipt Date: 20120109
  Transmission Date: 20120825
  Serious: No
  Sender: FDA-Public Use
  Company Number: US-ABBOTT-12P-163-0893047-00

PATIENT
  Age: 57 Year
  Sex: Male
  Weight: 129.39 kg

DRUGS (5)
  1. ANDROGEL [Suspect]
     Indication: BLOOD TESTOSTERONE DECREASED
     Dosage: 3 PUMPS
     Route: 061
     Dates: start: 20100101, end: 20100101
  2. ANDROGEL [Suspect]
     Dosage: 2 PUMPS
     Route: 061
     Dates: start: 20100101, end: 20100101
  3. AVALIDE [Concomitant]
     Indication: HYPERTENSION
  4. ANDROGEL [Suspect]
     Indication: BLOOD TESTOSTERONE DECREASED
     Dosage: 40.5 MILLIGRAMS TO ABOUT 31 MILLIGRAMS (STATED TAKING 2 TO 1.5 PUMPS)
     Route: 061
     Dates: start: 20111226
  5. LIPITOR [Concomitant]
     Indication: BLOOD CHOLESTEROL INCREASED

REACTIONS (5)
  - ASTHENIA [None]
  - MYALGIA [None]
  - MOOD SWINGS [None]
  - DEPRESSION [None]
  - BLOOD TESTOSTERONE INCREASED [None]
